FAERS Safety Report 5257677-0 (Version None)
Quarter: 2007Q1

REPORT INFORMATION
  Report Type: 
  Country: None (occurrence: None)
  Receive Date: 20070307
  Receipt Date: 20070228
  Transmission Date: 20070707
  Serious: Yes (Death, Hospitalization)
  Sender: FDA-Public Use
  Company Number: 2006UW05081

PATIENT
  Sex: Male
  Weight: 61.4 kg

DRUGS (3)
  1. SEROQUEL [Suspect]
     Route: 048
     Dates: start: 19981201, end: 20040501
  2. SEROQUEL [Suspect]
     Route: 048
     Dates: start: 20040601, end: 20050801
  3. CELEXA [Suspect]

REACTIONS (3)
  - DEATH [None]
  - DIABETES MELLITUS [None]
  - ULCER [None]
